FAERS Safety Report 5149192-X (Version None)
Quarter: 2006Q4

REPORT INFORMATION
  Report Type: 
  Country: None (occurrence: None)
  Receive Date: 20061113
  Receipt Date: 20060901
  Transmission Date: 20070319
  Serious: No
  Sender: FDA-Public Use
  Company Number: US-GLAXOSMITHKLINE-A0618920A

PATIENT
  Age: 80 Year
  Sex: Male

DRUGS (9)
  1. COREG [Suspect]
     Indication: DRUG USE FOR UNKNOWN INDICATION
     Dosage: 25MG TWICE PER DAY
     Route: 048
     Dates: start: 20040101
  2. ASPIRIN [Concomitant]
  3. ANTI-CHOLESTEROL MEDICATION [Concomitant]
  4. ZOCOR [Concomitant]
  5. LASIX [Concomitant]
  6. LISINOPRIL [Concomitant]
  7. TERAZOSIN HCL [Concomitant]
  8. UNKNOWN MEDICATION [Concomitant]
  9. SIMVASTATIN [Concomitant]

REACTIONS (5)
  - BLEPHAROSPASM [None]
  - DISTURBANCE IN ATTENTION [None]
  - DIZZINESS [None]
  - FATIGUE [None]
  - VISUAL DISTURBANCE [None]
